FAERS Safety Report 7020777-9 (Version None)
Quarter: 2010Q3

REPORT INFORMATION
  Report Type: 
  Country: None (occurrence: None)
  Receive Date: 20100929
  Receipt Date: 20100922
  Transmission Date: 20110219
  Serious: Yes (Other)
  Sender: FDA-Public Use
  Company Number: BR-PFIZER INC-2010120287

PATIENT
  Age: 74 Year
  Sex: Female

DRUGS (1)
  1. LIPITOR [Suspect]
     Indication: INFARCTION
     Dosage: 20 MG, UNK
     Route: 048
     Dates: start: 20100906

REACTIONS (5)
  - ABDOMINAL PAIN [None]
  - CARDIAC FAILURE [None]
  - MALAISE [None]
  - NAUSEA [None]
  - SOMNOLENCE [None]
